FAERS Safety Report 9808951 (Version 1)
Quarter: 2014Q1

REPORT INFORMATION
  Report Type: Spontaneous
  Country: US (occurrence: US)
  Receive Date: 20140110
  Receipt Date: 20140110
  Transmission Date: 20141002
  Serious: Yes (Death)
  Sender: FDA-Public Use
  Company Number: US-PFIZER INC-2014004853

PATIENT
  Age: 19 Year
  Sex: Female

DRUGS (8)
  1. OXYCODONE HYDROCHLORIDE [Suspect]
  2. HYDROCODONE [Suspect]
  3. BUPROPION [Suspect]
     Dosage: UNK
  4. DIAZEPAM [Suspect]
  5. CLONAZEPAM [Suspect]
  6. TEMAZEPAM [Suspect]
  7. PENTAZOCINE [Suspect]
  8. TRAZODONE [Suspect]

REACTIONS (3)
  - Drug abuse [Fatal]
  - Cardiac arrest [Fatal]
  - Respiratory arrest [Fatal]
